FAERS Safety Report 15287977 (Version 1)
Quarter: 2018Q3

REPORT INFORMATION
  Report Type: Spontaneous
  Country: US (occurrence: US)
  Receive Date: 20180802
  Receipt Date: 20180802
  Transmission Date: 20181010
  Serious: Yes (Other)
  Sender: FDA-Public Use
  Company Number: None

PATIENT
  Age: 16 Month
  Sex: Female
  Weight: 8.62 kg

DRUGS (1)
  1. ORAJEL NIGHTTIME TEETHING (BENZOCAINE) [Suspect]
     Active Substance: BENZOCAINE
     Indication: GINGIVAL SWELLING
     Route: 004
     Dates: start: 20180802, end: 20180802

REACTIONS (5)
  - Crying [None]
  - Insomnia [None]
  - Fear [None]
  - Vomiting [None]
  - Tongue discolouration [None]

NARRATIVE: CASE EVENT DATE: 20180802
